FAERS Safety Report 4818938-X (Version None)
Quarter: 2005Q4

REPORT INFORMATION
  Report Type: 
  Country: None (occurrence: None)
  Receive Date: 20051102
  Receipt Date: 20051102
  Transmission Date: 20060501
  Serious: Yes (Life-Threatening, Hospitalization, Disabling)
  Sender: FDA-Public Use
  Company Number: None

PATIENT
  Age: 21 Year
  Sex: Female
  Weight: 58.9676 kg

DRUGS (1)
  1. LEUPROLIDE ACETATE [Suspect]
     Indication: OFF LABEL USE

REACTIONS (4)
  - HYPOPITUITARISM [None]
  - INTRACRANIAL INJURY [None]
  - OFF LABEL USE [None]
  - PITUITARY HAEMORRHAGE [None]
